FAERS Safety Report 8352869-6 (Version None)
Quarter: 2012Q2

REPORT INFORMATION
  Report Type: 
  Country: None (occurrence: None)
  Receive Date: 20120511
  Receipt Date: 20120430
  Transmission Date: 20120825
  Serious: Yes (Death, Other)
  Sender: FDA-Public Use
  Company Number: CA-ELI_LILLY_AND_COMPANY-CA201203001754

PATIENT
  Sex: Male

DRUGS (7)
  1. DEXTROMETHORPHAN HYDROBROMIDE [Concomitant]
     Dosage: UNK
  2. PROZAC [Suspect]
     Indication: BIPOLAR DISORDER
     Dosage: UNK
  3. ZYPREXA [Concomitant]
     Dosage: UNK
  4. RESTORIL [Concomitant]
     Dosage: UNK
  5. DEXTROMETHORPHAN HYDROBROMIDE [Concomitant]
  6. BENYLIN DM [Concomitant]
  7. WELLBUTRIN [Concomitant]
     Dosage: UNK

REACTIONS (6)
  - SINUSITIS [None]
  - DRUG INTERACTION [None]
  - BRONCHITIS [None]
  - OFF LABEL USE [None]
  - ACCIDENTAL POISONING [None]
  - SEROTONIN SYNDROME [None]
